FAERS Safety Report 21077509 (Version 2)
Quarter: 2022Q3

REPORT INFORMATION
  Report Type: Spontaneous
  Country: US (occurrence: US)
  Receive Date: 20220713
  Receipt Date: 20220928
  Transmission Date: 20221027
  Serious: No
  Sender: FDA-Public Use
  Company Number: US-PFIZER INC-202200949782

PATIENT
  Age: 60 Year
  Sex: Female

DRUGS (11)
  1. PAXLOVID [Suspect]
     Active Substance: NIRMATRELVIR\RITONAVIR
     Indication: COVID-19 treatment
     Dosage: UNK
     Route: 048
     Dates: start: 20220628, end: 20220703
  2. ATORVASTATIN CALCIUM [Concomitant]
     Active Substance: ATORVASTATIN CALCIUM
     Dosage: 10 MG
     Route: 048
     Dates: start: 202201, end: 20220627
  3. BUPROPION [Interacting]
     Active Substance: BUPROPION
     Dosage: 300 MG
     Route: 048
     Dates: start: 202201, end: 20220711
  4. VYVANSE [Concomitant]
     Active Substance: LISDEXAMFETAMINE DIMESYLATE
     Dosage: 70 MG
     Route: 048
     Dates: start: 202201, end: 20220711
  5. HERBALS\TURMERIC [Concomitant]
     Active Substance: HERBALS\TURMERIC
     Dosage: 500 MG
     Route: 048
     Dates: start: 202201, end: 20220711
  6. DEXMETHYLPHENIDATE [Concomitant]
     Active Substance: DEXMETHYLPHENIDATE
     Dosage: 10 MG
     Route: 048
     Dates: start: 202201, end: 20220711
  7. L-METHYLFOLATE CALCIUM [CALCIUM LEVOMEFOLATE] [Concomitant]
     Dosage: 15 MG
     Route: 048
     Dates: start: 202201, end: 20220711
  8. TRINTELLIX [Concomitant]
     Active Substance: VORTIOXETINE HYDROBROMIDE
     Dosage: 20 MG
     Route: 048
     Dates: start: 202201, end: 20220711
  9. FAMOTIDINE [Concomitant]
     Active Substance: FAMOTIDINE
     Dosage: 40 MG
     Route: 048
     Dates: start: 202201, end: 20220711
  10. METOPROLOL SUCCINATE [Concomitant]
     Active Substance: METOPROLOL SUCCINATE
     Dosage: 25 MG
     Route: 048
     Dates: start: 202201, end: 20220711
  11. BACLOFEN [Concomitant]
     Active Substance: BACLOFEN
     Dosage: 30 MG
     Route: 048
     Dates: start: 202201, end: 20220711

REACTIONS (2)
  - COVID-19 [Recovered/Resolved]
  - Disease recurrence [Recovered/Resolved]

NARRATIVE: CASE EVENT DATE: 20220706
